FAERS Safety Report 11198941 (Version 11)
Quarter: 2016Q3

REPORT INFORMATION
  Report Type: Spontaneous
  Country: AU (occurrence: AU)
  Receive Date: 20150618
  Receipt Date: 20160701
  Transmission Date: 20161109
  Serious: Yes (Hospitalization, Other)
  Sender: FDA-Public Use
  Company Number: AU-SA-2015SA085176

PATIENT
  Age: 56 Year
  Sex: Male

DRUGS (7)
  1. FABRAZYME [Suspect]
     Active Substance: AGALSIDASE BETA
     Indication: FABRY^S DISEASE
     Dosage: DOSE-90 MG FORTNIGHTLY IN 250 ML N/SALINE OVER 2 HOURS
     Route: 041
     Dates: start: 2006
  2. FABRAZYME [Suspect]
     Active Substance: AGALSIDASE BETA
     Indication: FABRY^S DISEASE
     Dosage: DOSE-90 MG FORTNIGHTLY IN 250 ML N/SALINE OVER 2 HOURS
     Route: 041
     Dates: start: 2006
  3. FABRAZYME [Suspect]
     Active Substance: AGALSIDASE BETA
     Indication: FABRY^S DISEASE
     Dosage: DOSE-90 MG FORTNIGHTLY IN 250 ML N/SALINE OVER 2 HOURS
     Route: 041
     Dates: start: 2006
  4. FABRAZYME [Suspect]
     Active Substance: AGALSIDASE BETA
     Indication: FABRY^S DISEASE
     Dosage: DOSE-90 MG FORTNIGHTLY IN 250 ML N/SALINE OVER 2 HOURS
     Route: 041
     Dates: start: 20160527
  5. FABRAZYME [Suspect]
     Active Substance: AGALSIDASE BETA
     Indication: FABRY^S DISEASE
     Dosage: DOSE-90 MG FORTNIGHTLY IN 250 ML N/SALINE OVER 2 HOURS
     Route: 041
     Dates: start: 20160527
  6. SOTALOL. [Concomitant]
     Active Substance: SOTALOL
  7. PANADOL [Concomitant]
     Active Substance: ACETAMINOPHEN

REACTIONS (20)
  - Abscess limb [Recovering/Resolving]
  - Wound complication [Unknown]
  - Diarrhoea [Not Recovered/Not Resolved]
  - Back pain [Not Recovered/Not Resolved]
  - Arrhythmia [Recovered/Resolved with Sequelae]
  - Blood creatinine increased [Unknown]
  - Malaise [Unknown]
  - Transient ischaemic attack [Unknown]
  - Cerebrovascular accident [Unknown]
  - Pain [Not Recovered/Not Resolved]
  - Lethargy [Not Recovered/Not Resolved]
  - Oedema peripheral [Recovered/Resolved]
  - Memory impairment [Unknown]
  - Nasopharyngitis [Recovering/Resolving]
  - Skin ulcer [Recovering/Resolving]
  - Decubitus ulcer [Recovering/Resolving]
  - Cellulitis [Recovered/Resolved]
  - Tenderness [Recovered/Resolved]
  - Dysarthria [Unknown]
  - Localised infection [Recovering/Resolving]

NARRATIVE: CASE EVENT DATE: 20150603
